FAERS Safety Report 6516218-8 (Version None)
Quarter: 2009Q4

REPORT INFORMATION
  Report Type: 
  Country: None (occurrence: None)
  Receive Date: 20091223
  Receipt Date: 20091211
  Transmission Date: 20100525
  Serious: Yes (Hospitalization)
  Sender: FDA-Public Use
  Company Number: US-ALEXION-A200901019

PATIENT
  Sex: Male

DRUGS (1)
  1. SOLIRIS 300MG [Suspect]
     Dosage: UNK
     Route: 042
     Dates: start: 20090101, end: 20090101

REACTIONS (1)
  - MENINGITIS CRYPTOCOCCAL [None]
